FAERS Safety Report 20941967 (Version 2)
Quarter: 2022Q4

REPORT INFORMATION
  Report Type: Report from Study
  Country: AR (occurrence: AR)
  Receive Date: 20220610
  Receipt Date: 20221108
  Transmission Date: 20230113
  Serious: Yes (Disabling)
  Sender: FDA-Public Use
  Company Number: AR-NOVARTISPH-NVSC2022AR036446

PATIENT
  Age: 70 Year
  Sex: Female

DRUGS (1)
  1. COSENTYX [Suspect]
     Active Substance: SECUKINUMAB
     Indication: Psoriatic arthropathy
     Dosage: 150 MG, QMO
     Route: 058
     Dates: start: 20220207

REACTIONS (5)
  - Movement disorder [Unknown]
  - Injection site haematoma [Unknown]
  - Injection site bruising [Not Recovered/Not Resolved]
  - Lung disorder [Unknown]
  - Illness [Unknown]

NARRATIVE: CASE EVENT DATE: 20220207
